FAERS Safety Report 14377987 (Version 1)
Quarter: 2018Q1

REPORT INFORMATION
  Report Type: Spontaneous
  Country: US (occurrence: US)
  Receive Date: 20180111
  Receipt Date: 20180111
  Transmission Date: 20180509
  Serious: No
  Sender: FDA-Public Use
  Company Number: US-IMPAX LABORATORIES, INC-2017-IPXL-00373

PATIENT
  Age: 10 Year
  Sex: Female

DRUGS (3)
  1. DEXMETHYLPHENIDATE HYDROCHLORIDE ER [Suspect]
     Active Substance: DEXMETHYLPHENIDATE HYDROCHLORIDE
     Indication: ATTENTION DEFICIT/HYPERACTIVITY DISORDER
     Dosage: 15 MG, ONCE A DAY
     Route: 065
     Dates: start: 20151102, end: 20151104
  2. BENADRYL [Concomitant]
     Active Substance: DIPHENHYDRAMINE HYDROCHLORIDE
     Indication: ALLERGY TO ANIMAL
     Dosage: 50 MG, DAILY
     Route: 065
  3. LORATADINE. [Concomitant]
     Active Substance: LORATADINE
     Indication: ANTIALLERGIC THERAPY
     Dosage: 10 MG, DAILY
     Route: 065

REACTIONS (5)
  - Product substitution issue [Unknown]
  - Insomnia [Recovered/Resolved]
  - Hallucination [Recovered/Resolved]
  - Energy increased [Recovered/Resolved]
  - Mania [Recovered/Resolved]

NARRATIVE: CASE EVENT DATE: 20151102
